FAERS Safety Report 24453130 (Version 2)
Quarter: 2024Q4

REPORT INFORMATION
  Report Type: Report from Study
  Country: US (occurrence: US)
  Receive Date: 20241017
  Receipt Date: 20241018
  Transmission Date: 20250115
  Serious: No
  Sender: ROCHE
  Company Number: US-ROCHE-3176768

PATIENT
  Age: 29 Year
  Sex: Female

DRUGS (7)
  1. RITUXAN [Suspect]
     Active Substance: RITUXIMAB
     Indication: Encephalitis
     Dosage: DAY 01, DAY 14, EVERY 3 MONTH FOR 1 YEAR
     Route: 041
  2. RITUXAN [Suspect]
     Active Substance: RITUXIMAB
     Indication: Encephalomyelitis
  3. RITUXAN [Suspect]
     Active Substance: RITUXIMAB
     Indication: Stiff person syndrome
  4. RITUXAN [Suspect]
     Active Substance: RITUXIMAB
     Indication: Seizure
  5. RITUXAN [Suspect]
     Active Substance: RITUXIMAB
     Indication: Affective disorder
  6. RITUXAN [Suspect]
     Active Substance: RITUXIMAB
     Indication: Immune system disorder
  7. RITUXAN [Suspect]
     Active Substance: RITUXIMAB
     Indication: Immune system disorder

REACTIONS (2)
  - Off label use [Unknown]
  - No adverse event [Unknown]
